FAERS Safety Report 15230051 (Version 1)
Quarter: 2018Q3

REPORT INFORMATION
  Report Type: Spontaneous
  Country: US (occurrence: US)
  Receive Date: 20180802
  Receipt Date: 20180802
  Transmission Date: 20181010
  Serious: Yes (Other)
  Sender: FDA-Public Use
  Company Number: US-ACCORD-063017

PATIENT
  Age: 59 Year
  Sex: Female
  Weight: 95.25 kg

DRUGS (11)
  1. DOCETAXEL ACCORD [Suspect]
     Active Substance: DOCETAXEL
     Indication: BREAST CANCER
     Dosage: NO OF CYCLES: 06
     Dates: start: 20141010, end: 20150213
  2. LISINOPRIL. [Concomitant]
     Active Substance: LISINOPRIL
     Dosage: ALSO RECEIVED FROM 2016
     Dates: start: 1990
  3. DIAZEPAM. [Concomitant]
     Active Substance: DIAZEPAM
     Dates: start: 1990
  4. DEXAMETHASONE. [Concomitant]
     Active Substance: DEXAMETHASONE
     Dates: start: 1990
  5. PERTUZUMAB. [Suspect]
     Active Substance: PERTUZUMAB
     Indication: BREAST CANCER
     Dosage: NO OF CYCLES: 06
     Dates: start: 20141010, end: 20150213
  6. METFORMIN [Concomitant]
     Active Substance: METFORMIN HYDROCHLORIDE
     Dosage: ALSO RECEIVED FROM 2016
     Dates: start: 1990
  7. PARAPLATIN [Suspect]
     Active Substance: CARBOPLATIN
     Indication: BREAST CANCER
     Dosage: NO OF CYCLE: 06
     Dates: start: 20141010, end: 20150213
  8. TRASTUZUMAB. [Suspect]
     Active Substance: TRASTUZUMAB
     Indication: BREAST CANCER
     Dosage: NO OF CYCLE: 06
     Dates: start: 20141010, end: 20150213
  9. OXYCODONE [Concomitant]
     Active Substance: OXYCODONE
     Dates: start: 1990
  10. LETROZOLE. [Concomitant]
     Active Substance: LETROZOLE
     Dates: start: 2016
  11. PROCHLORPERAZINE. [Concomitant]
     Active Substance: PROCHLORPERAZINE
     Dates: start: 1990

REACTIONS (1)
  - Alopecia [Recovering/Resolving]

NARRATIVE: CASE EVENT DATE: 2015
